FAERS Safety Report 14154213 (Version 7)
Quarter: 2018Q3

REPORT INFORMATION
  Report Type: Spontaneous
  Country: JP (occurrence: JP)
  Receive Date: 20171102
  Receipt Date: 20180921
  Transmission Date: 20181010
  Serious: Yes (Death, Other)
  Sender: FDA-Public Use
  Company Number: JP-009507513-1708JPN002582J

PATIENT
  Age: 77 Year
  Sex: Male
  Weight: 50 kg

DRUGS (16)
  1. MEXITIL [Concomitant]
     Active Substance: MEXILETINE HYDROCHLORIDE
     Indication: LUNG ADENOCARCINOMA
     Dosage: 100.00 MG, BID
     Route: 048
     Dates: end: 20170816
  2. MUCOSOLVAN L [Concomitant]
     Active Substance: AMBROXOL HYDROCHLORIDE
     Indication: BRONCHITIS
     Dosage: 45.00 MG, QD
     Dates: start: 20170726, end: 20170816
  3. KEYTRUDA [Suspect]
     Active Substance: PEMBROLIZUMAB
     Indication: LUNG ADENOCARCINOMA
     Dosage: 200 MG, Q3W
     Route: 041
     Dates: start: 20170613, end: 20170725
  4. PARIET [Concomitant]
     Active Substance: RABEPRAZOLE SODIUM
     Indication: PROPHYLAXIS
     Dosage: 10.00 MG, QD
     Route: 048
     Dates: end: 20170816
  5. MIYA?BM [Concomitant]
     Active Substance: CLOSTRIDIUM BUTYRICUM SPORES STRAIN M-55
     Indication: PROPHYLAXIS
     Dosage: 1.00 G, TID
     Route: 048
     Dates: end: 20170816
  6. HACHIAZULE [Concomitant]
     Indication: LUNG ADENOCARCINOMA
     Dosage: 2.00 G, TID
     Route: 002
     Dates: end: 20170816
  7. DECADRON [Concomitant]
     Active Substance: DEXAMETHASONE
     Indication: LUNG ADENOCARCINOMA
     Dosage: 1.0 MG, BID
     Route: 048
     Dates: start: 20170614, end: 20170809
  8. EXCELASE [Concomitant]
     Active Substance: PANCRELIPASE
     Indication: PROPHYLAXIS
     Dosage: 1.00 DF, TID
     Route: 048
     Dates: end: 20170816
  9. DECADRON [Concomitant]
     Active Substance: DEXAMETHASONE
     Indication: LUNG ADENOCARCINOMA
     Dosage: 1.0 MG, QD
     Route: 051
     Dates: end: 20170809
  10. GLYCYRON [Concomitant]
     Active Substance: AMMONIUM GLYCYRRHIZATE\GLYCINE\METHIONINE
     Indication: PROPHYLAXIS
     Dosage: 1 DF, TID
     Route: 048
  11. AMLODIN OD [Concomitant]
     Active Substance: AMLODIPINE BESYLATE
     Indication: HYPERTENSION
     Dosage: 5.00 MG, QD
     Route: 048
     Dates: end: 20170825
  12. FLUITRAN [Concomitant]
     Active Substance: TRICHLORMETHIAZIDE
     Indication: HYPERTENSION
     Dosage: 2.00 MG, QD
     Route: 048
     Dates: end: 20170825
  13. DEPAS [Concomitant]
     Active Substance: ETIZOLAM
     Indication: LUNG ADENOCARCINOMA
     Dosage: 0.50 MG, BID
     Route: 048
     Dates: end: 20170816
  14. EVAMYL [Concomitant]
     Active Substance: LORMETAZEPAM
     Indication: LUNG ADENOCARCINOMA
     Dosage: 1.00 MG, QD
     Route: 048
     Dates: start: 20170619, end: 20170815
  15. MYSLEE [Concomitant]
     Active Substance: ZOLPIDEM TARTRATE
     Indication: INSOMNIA
     Dosage: 5.00 MG, QD
     Route: 048
     Dates: end: 20170825
  16. LOXONIN [Concomitant]
     Active Substance: LOXOPROFEN SODIUM
     Indication: LUNG ADENOCARCINOMA
     Dosage: 60.0 MG, QD
     Route: 048
     Dates: end: 20170727

REACTIONS (1)
  - Malignant neoplasm progression [Fatal]

NARRATIVE: CASE EVENT DATE: 20170725
